FAERS Safety Report 4835875-5 (Version None)
Quarter: 2005Q4

REPORT INFORMATION
  Report Type: 
  Country: None (occurrence: None)
  Receive Date: 20051118
  Receipt Date: 20051108
  Transmission Date: 20060501
  Serious: Yes (Hospitalization, Other)
  Sender: FDA-Public Use
  Company Number: 2005134886

PATIENT
  Sex: Male

DRUGS (3)
  1. ZOLOFT [Suspect]
     Indication: ILL-DEFINED DISORDER
  2. TRAMADOL HCL [Suspect]
     Indication: ILL-DEFINED DISORDER
  3. VALTREX [Concomitant]

REACTIONS (7)
  - DRUG EXPOSURE DURING PREGNANCY [None]
  - DRUG EXPOSURE VIA BREAST MILK [None]
  - INAPPROPRIATE ANTIDIURETIC HORMONE SECRETION [None]
  - IRRITABILITY [None]
  - NEONATAL RESPIRATORY DISTRESS SYNDROME [None]
  - TRANSIENT TACHYPNOEA OF THE NEWBORN [None]
  - URINE OUTPUT DECREASED [None]
